FAERS Safety Report 8109820-3 (Version None)
Quarter: 2012Q1

REPORT INFORMATION
  Report Type: 
  Country: None (occurrence: None)
  Receive Date: 20120202
  Receipt Date: 20120120
  Transmission Date: 20120608
  Serious: No
  Sender: FDA-Public Use
  Company Number: US-AMGEN-USASP2012004404

PATIENT
  Sex: Female

DRUGS (2)
  1. ENBREL [Suspect]
     Indication: ANKYLOSING SPONDYLITIS
     Dosage: 50 MG, QWK
     Dates: start: 20110801
  2. LYRICA [Concomitant]
     Dosage: UNK, BID

REACTIONS (2)
  - RESTLESS LEGS SYNDROME [None]
  - INJECTION SITE ERYTHEMA [None]
